FAERS Safety Report 23713416 (Version 2)
Quarter: 2024Q2

REPORT INFORMATION
  Report Type: Report from Study
  Country: DE (occurrence: DE)
  Receive Date: 20240405
  Receipt Date: 20240506
  Transmission Date: 20240716
  Serious: Yes (Other)
  Sender: FDA-Public Use
  Company Number: DE-SA-SAC20230613000885

PATIENT
  Age: 84 Year
  Sex: Male
  Weight: 84 kg

DRUGS (34)
  1. DEXAMETHASONE [Suspect]
     Active Substance: DEXAMETHASONE
     Indication: Plasma cell myeloma refractory
     Dosage: 20 MG, 8 TIMES 1,2,8,9,15,16,22,23
     Route: 065
     Dates: start: 20240212, end: 20240305
  2. DEXAMETHASONE [Suspect]
     Active Substance: DEXAMETHASONE
     Dosage: 20 MG (1,2,8,9,15,16,22,23)
     Route: 065
     Dates: start: 20231011, end: 20231102
  3. DEXAMETHASONE [Suspect]
     Active Substance: DEXAMETHASONE
     Dosage: 20 MG, 8 TIMES 1,2,8,9,15,16,22,23
     Route: 065
     Dates: start: 20231116, end: 20231208
  4. DEXAMETHASONE [Suspect]
     Active Substance: DEXAMETHASONE
     Dosage: 20 MG (1,2,8,9,15,16,22,23)
     Route: 065
     Dates: start: 20230622, end: 20230714
  5. DEXAMETHASONE [Suspect]
     Active Substance: DEXAMETHASONE
     Dosage: 20 MG (1,,2,8,9,15,16,22,2,3)
     Route: 065
     Dates: start: 20230817, end: 20230908
  6. DEXAMETHASONE [Suspect]
     Active Substance: DEXAMETHASONE
     Dosage: 20 MG ( 1,2,8,9,15,16,22,23)
     Route: 065
     Dates: start: 20230720, end: 20230811
  7. DEXAMETHASONE [Suspect]
     Active Substance: DEXAMETHASONE
     Dosage: 20 MG (1,2,8,9,15,16)
     Route: 065
     Dates: start: 20230525, end: 20230609
  8. DEXAMETHASONE [Suspect]
     Active Substance: DEXAMETHASONE
     Dosage: 20 MG (1,2,8,9,15,16,22,23)
     Route: 065
     Dates: start: 20230914, end: 20231006
  9. DEXAMETHASONE [Suspect]
     Active Substance: DEXAMETHASONE
     Dosage: 20 MG (1,2,8,9,15,16)
     Route: 065
     Dates: start: 20230328, end: 20230412
  10. DEXAMETHASONE [Suspect]
     Active Substance: DEXAMETHASONE
     Dosage: 20 MG (1,2,8,9,15,16)
     Route: 065
     Dates: start: 20230425, end: 20230510
  11. ISATUXIMAB [Suspect]
     Active Substance: ISATUXIMAB
     Indication: Plasma cell myeloma refractory
     Dosage: 870 MG, BIW
     Route: 065
     Dates: start: 20230914, end: 20230928
  12. ISATUXIMAB [Suspect]
     Active Substance: ISATUXIMAB
     Dosage: 870 MG, BIW
     Route: 065
     Dates: start: 20230817, end: 20230831
  13. ISATUXIMAB [Suspect]
     Active Substance: ISATUXIMAB
     Dosage: 870 MG, BIW
     Route: 065
     Dates: start: 20231116
  14. ISATUXIMAB [Suspect]
     Active Substance: ISATUXIMAB
     Dosage: 870 MG, BIW
     Dates: start: 20230425, end: 20230509
  15. ISATUXIMAB [Suspect]
     Active Substance: ISATUXIMAB
     Dosage: 870 MG, BIW
     Dates: start: 20230720, end: 20230803
  16. ISATUXIMAB [Suspect]
     Active Substance: ISATUXIMAB
     Dosage: 870 MG, BIW
     Route: 065
     Dates: start: 20240212, end: 20240226
  17. ISATUXIMAB [Suspect]
     Active Substance: ISATUXIMAB
     Dosage: 870 MG, BIW
     Route: 065
     Dates: start: 20230622, end: 20230706
  18. ISATUXIMAB [Suspect]
     Active Substance: ISATUXIMAB
     Dosage: 870 MG, BIW
     Route: 065
     Dates: start: 20231011
  19. ISATUXIMAB [Suspect]
     Active Substance: ISATUXIMAB
     Dosage: 870 MG, QW
     Route: 065
     Dates: start: 20230328, end: 20230418
  20. ISATUXIMAB [Suspect]
     Active Substance: ISATUXIMAB
     Dosage: 870 MG, BIW
     Route: 065
     Dates: start: 20230525, end: 20230608
  21. CARFILZOMIB [Suspect]
     Active Substance: CARFILZOMIB
     Indication: Plasma cell myeloma refractory
     Dosage: 112 MG (1,2,8,9,15,16)
     Route: 065
     Dates: start: 20230622, end: 20230707
  22. CARFILZOMIB [Suspect]
     Active Substance: CARFILZOMIB
     Dosage: 112 MG (1,2,8,9,15,16)
     Route: 065
     Dates: start: 20230525, end: 20230609
  23. CARFILZOMIB [Suspect]
     Active Substance: CARFILZOMIB
     Dosage: 112 MG (1,2,8,9,15,16)
     Route: 065
     Dates: start: 20230817, end: 20230901
  24. CARFILZOMIB [Suspect]
     Active Substance: CARFILZOMIB
     Dosage: 112 MG (1,2,8,9,15,16)
     Route: 065
     Dates: start: 20230914, end: 20230929
  25. CARFILZOMIB [Suspect]
     Active Substance: CARFILZOMIB
     Dosage: 112 MG (1,2,8,9,15,16)
     Route: 065
     Dates: start: 20230425, end: 20230510
  26. CARFILZOMIB [Suspect]
     Active Substance: CARFILZOMIB
     Dosage: 112 MG, 6 TIMES 1,2,8,9,15,16
     Route: 065
     Dates: start: 20231116, end: 20231201
  27. CARFILZOMIB [Suspect]
     Active Substance: CARFILZOMIB
     Dosage: 112 MG (1,2,8,9,15,16)
     Route: 065
     Dates: start: 20230720, end: 20230804
  28. CARFILZOMIB [Suspect]
     Active Substance: CARFILZOMIB
     Dosage: 40 MG (1,2)
     Route: 065
     Dates: start: 20230328, end: 20230329
  29. CARFILZOMIB [Suspect]
     Active Substance: CARFILZOMIB
     Dosage: 112 MG (1,2,8,9,15,16)
     Route: 065
     Dates: start: 20231011, end: 20231026
  30. CARFILZOMIB [Suspect]
     Active Substance: CARFILZOMIB
     Dosage: 112 MG (8,9,15,16)
     Route: 065
     Dates: start: 20230404, end: 20230412
  31. CARFILZOMIB [Suspect]
     Active Substance: CARFILZOMIB
     Dosage: 112 MG, 6 TIMES 1,2,8,9,15,16
     Route: 065
     Dates: start: 20240212, end: 20240227
  32. MONTELUKAST [Concomitant]
     Active Substance: MONTELUKAST SODIUM
     Indication: Prophylaxis
     Dosage: UNK UNK, QCY
     Route: 065
     Dates: start: 20230328
  33. MCP BETA [Concomitant]
     Indication: Prophylaxis
     Dosage: UNK
     Route: 065
     Dates: start: 20230328
  34. CLEMASTINE [Concomitant]
     Active Substance: CLEMASTINE
     Indication: Prophylaxis
     Dosage: UNK UNK, QCY
     Route: 065
     Dates: start: 20230328

REACTIONS (19)
  - Leukopenia [Recovered/Resolved]
  - Leukopenia [Recovered/Resolved]
  - Leukopenia [Recovered/Resolved]
  - Leukopenia [Recovered/Resolved]
  - Leukopenia [Recovered/Resolved]
  - Leukopenia [Recovered/Resolved]
  - Neutropenia [Recovered/Resolved]
  - Neutropenia [Recovered/Resolved]
  - Neutropenia [Recovered/Resolved]
  - White blood cell count decreased [Not Recovered/Not Resolved]
  - Chills [Recovered/Resolved]
  - Back pain [Recovered/Resolved]
  - Cough [Recovered/Resolved]
  - Thrombocytosis [Not Recovered/Not Resolved]
  - Odynophagia [Recovered/Resolved]
  - Anaemia [Recovered/Resolved]
  - Pyrexia [Recovered/Resolved]
  - Ageusia [Recovering/Resolving]
  - Abdominal pain upper [Recovered/Resolved]

NARRATIVE: CASE EVENT DATE: 20230404
